FAERS Safety Report 8007599-7 (Version None)
Quarter: 2011Q4

REPORT INFORMATION
  Report Type: 
  Country: None (occurrence: None)
  Receive Date: 20111227
  Receipt Date: 20111219
  Transmission Date: 20120403
  Serious: Yes (Other)
  Sender: FDA-Public Use
  Company Number: US-BAYER-2011-001153

PATIENT
  Age: 31 Year
  Sex: Female
  Weight: 53.515 kg

DRUGS (15)
  1. EXCEDRIN (MIGRAINE) [Concomitant]
     Indication: PAIN
     Dosage: UNK
     Dates: start: 20081101
  2. EXTRA STRENGTH TYLENOL [Concomitant]
  3. PERCOCET [Concomitant]
     Indication: PAIN
     Dosage: UNK
     Dates: start: 20080821
  4. DROSPIRENONE AND ETHINYL ESTRADIOL [Suspect]
     Indication: ACNE
     Dosage: UNK
     Dates: start: 20080901, end: 20081101
  5. YAZ [Suspect]
     Indication: PREMENSTRUAL SYNDROME
     Dosage: UNK
     Dates: start: 20080101
  6. MOTRIN [Concomitant]
  7. MINOCYCLINE HCL [Concomitant]
     Indication: ACNE
     Dosage: 100 MG, UNK
     Dates: start: 20060531, end: 20081001
  8. YAZ [Suspect]
     Indication: ACNE
     Dosage: UNK
     Dates: start: 20070101
  9. SOLODYN [Concomitant]
     Dosage: 90 MG, UNK
  10. YASMIN [Suspect]
     Indication: PREMENSTRUAL SYNDROME
  11. DROSPIRENONE AND ETHINYL ESTRADIOL [Suspect]
     Indication: PREMENSTRUAL SYNDROME
  12. IBUPROFEN [Concomitant]
     Indication: PAIN
     Dosage: 800 MG, TID
     Dates: start: 20081101
  13. YASMIN [Suspect]
     Indication: ACNE
     Dosage: UNK
     Dates: start: 20070401, end: 20080901
  14. DUAC CS CONVENIENCE [Concomitant]
     Indication: ACNE
     Dosage: UNK
     Dates: start: 20080507, end: 20081101
  15. DIFFERIN [Concomitant]
     Indication: ACNE
     Dosage: UNK
     Dates: start: 20060531, end: 20081124

REACTIONS (8)
  - FEAR [None]
  - HEADACHE [None]
  - PAIN [None]
  - CEREBRAL VENOUS THROMBOSIS [None]
  - EMOTIONAL DISTRESS [None]
  - ANXIETY [None]
  - INSOMNIA [None]
  - DIZZINESS [None]
